FAERS Safety Report 7334517-7 (Version None)
Quarter: 2011Q1

REPORT INFORMATION
  Report Type: 
  Country: None (occurrence: None)
  Receive Date: 20110307
  Receipt Date: 20110226
  Transmission Date: 20110831
  Serious: Yes (Other)
  Sender: FDA-Public Use
  Company Number: US-US-EMD SERONO, INC.-7003904

PATIENT
  Sex: Female
  Weight: 64 kg

DRUGS (7)
  1. DIOVAN [Concomitant]
     Route: 048
  2. NAPROXEN [Concomitant]
     Indication: PAIN
     Route: 048
  3. PRAVASTATIN SODIUM [Concomitant]
     Route: 048
  4. REBIF [Suspect]
     Indication: SECONDARY PROGRESSIVE MULTIPLE SCLEROSIS
     Route: 058
     Dates: start: 20030630
  5. ZOLOFT [Concomitant]
     Indication: DEPRESSION
     Route: 048
  6. DETROL LA [Concomitant]
  7. FOSAMAX [Concomitant]
     Route: 048

REACTIONS (14)
  - VERTIGO [None]
  - HYPERTENSION [None]
  - MULTIPLE SCLEROSIS RELAPSE [None]
  - INJECTION SITE REACTION [None]
  - VISUAL IMPAIRMENT [None]
  - NEUROGENIC BLADDER [None]
  - OPTIC NEURITIS [None]
  - BACK PAIN [None]
  - ANXIETY [None]
  - GAIT DISTURBANCE [None]
  - HIP FRACTURE [None]
  - FALL [None]
  - DIZZINESS [None]
  - NECK PAIN [None]
